FAERS Safety Report 8532502-0 (Version None)
Quarter: 2012Q3

REPORT INFORMATION
  Report Type: 
  Country: None (occurrence: None)
  Receive Date: 20120717
  Receipt Date: 20120717
  Transmission Date: 20120928
  Serious: Yes (Other)
  Sender: FDA-Public Use
  Company Number: None

PATIENT
  Sex: Female

DRUGS (2)
  1. PRAVASTATIN [Suspect]
     Indication: BLOOD CHOLESTEROL INCREASED
     Dosage: 20 MG ONCE A DAY PO
     Route: 048
     Dates: start: 20120401, end: 20120716
  2. SYNTHROID [Concomitant]

REACTIONS (7)
  - FATIGUE [None]
  - MUSCULAR WEAKNESS [None]
  - VISUAL IMPAIRMENT [None]
  - INSOMNIA [None]
  - DYSPEPSIA [None]
  - ALOPECIA [None]
  - AMNESIA [None]
